FAERS Safety Report 14706940 (Version 3)
Quarter: 2018Q2

REPORT INFORMATION
  Report Type: Report from Study
  Country: None (occurrence: US)
  Receive Date: 20180403
  Receipt Date: 20180622
  Transmission Date: 20180711
  Serious: Yes (Other)
  Sender: FDA-Public Use
  Company Number: US-ABBVIE-18K-163-2307445-00

PATIENT
  Age: 59 Year
  Sex: Female

DRUGS (1)
  1. HUMIRA [Suspect]
     Active Substance: ADALIMUMAB
     Indication: PSORIATIC ARTHROPATHY
     Route: 058

REACTIONS (17)
  - Nasopharyngitis [Unknown]
  - Incorrect dose administered [Unknown]
  - Fall [Unknown]
  - Injection site pain [Unknown]
  - Sinusitis [Recovered/Resolved]
  - Exostosis [Unknown]
  - Sinusitis [Recovered/Resolved]
  - Injection site haemorrhage [Unknown]
  - Sinusitis [Unknown]
  - Device issue [Recovered/Resolved]
  - Device issue [Unknown]
  - Myalgia [Not Recovered/Not Resolved]
  - Sinusitis [Recovered/Resolved]
  - Tendon rupture [Unknown]
  - Rotator cuff syndrome [Unknown]
  - Incorrect dose administered [Unknown]
  - Contusion [Unknown]

NARRATIVE: CASE EVENT DATE: 201708
